FAERS Safety Report 9665877 (Version 1)
Quarter: 2013Q4

REPORT INFORMATION
  Report Type: Spontaneous
  Country: US (occurrence: None)
  Receive Date: 20131101
  Receipt Date: 20131101
  Transmission Date: 20140711
  Serious: Yes (Disabling)
  Sender: FDA-Public Use
  Company Number: None

PATIENT
  Age: 2 Year
  Sex: Female
  Weight: 18.14 kg

DRUGS (1)
  1. ALBUTEROL SULFATE INHALATION 0.083% NEPHRON PHARMACEUTICALS [Suspect]
     Indication: RESPIRATORY SYNCYTIAL VIRUS INFECTION
     Dosage: I VIAL THREEE TIMES DAILY TAKEN BY MOUTH
     Route: 048
     Dates: start: 20131012, end: 20131031

REACTIONS (2)
  - Vomiting [None]
  - Pyrexia [None]
